FAERS Safety Report 5202738-5 (Version None)
Quarter: 2007Q1

REPORT INFORMATION
  Report Type: 
  Country: None (occurrence: None)
  Receive Date: 20070109
  Receipt Date: 20061228
  Transmission Date: 20070707
  Serious: Yes (Other)
  Sender: FDA-Public Use
  Company Number: US-PFIZER INC-2007000703

PATIENT
  Sex: Female

DRUGS (15)
  1. LYRICA [Suspect]
     Indication: DIABETIC NEUROPATHY
  2. METFORMIN HCL [Concomitant]
  3. TRAMADOL HCL [Concomitant]
  4. NORTRIPTYLINE HCL [Concomitant]
  5. GLYBURIDE [Concomitant]
  6. INSULIN [Concomitant]
  7. METOPROLOL SUCCINATE [Concomitant]
  8. FUROSEMIDE [Concomitant]
  9. ALL OTHER THERAPEUTIC PRODUCTS [Concomitant]
  10. ALL OTHER THERAPEUTIC PRODUCTS [Concomitant]
  11. ALL OTHER THERAPEUTIC PRODUCTS [Concomitant]
  12. ZETIA [Concomitant]
  13. BABYPRIN [Concomitant]
  14. ADVIL [Concomitant]
  15. BYETTA [Concomitant]

REACTIONS (3)
  - MENTAL DISORDER [None]
  - PAIN [None]
  - VISION BLURRED [None]
